FAERS Safety Report 7969185-4 (Version None)
Quarter: 2011Q4

REPORT INFORMATION
  Report Type: 
  Country: None (occurrence: None)
  Receive Date: 20111209
  Receipt Date: 20110926
  Transmission Date: 20120403
  Serious: Yes (Hospitalization)
  Sender: FDA-Public Use
  Company Number: US-ROCHE-1018056

PATIENT
  Sex: Male
  Weight: 51 kg

DRUGS (10)
  1. LORAZEPAM [Concomitant]
  2. DTO [Concomitant]
     Route: 048
  3. LOMOTIL [Concomitant]
  4. REMERON [Concomitant]
     Route: 048
  5. AVASTIN [Suspect]
     Indication: GASTROOESOPHAGEAL CANCER
     Dates: start: 20110503, end: 20110913
  6. VITAMIN K TAB [Concomitant]
  7. XELODA [Suspect]
     Indication: GASTROOESOPHAGEAL CANCER
     Dates: start: 20110315, end: 20110919
  8. HERCEPTIN [Suspect]
     Indication: GASTROOESOPHAGEAL CANCER
     Dates: start: 20110426, end: 20110913
  9. OXALIPLATIN [Suspect]
     Indication: GASTROOESOPHAGEAL CANCER
     Dates: start: 20110315, end: 20110913
  10. PREVACID [Concomitant]

REACTIONS (1)
  - PNEUMATOSIS INTESTINALIS [None]
